FAERS Safety Report 12442881 (Version 5)
Quarter: 2016Q2

REPORT INFORMATION
  Report Type: Spontaneous
  Country: JP (occurrence: JP)
  Receive Date: 20160607
  Receipt Date: 20160617
  Transmission Date: 20160815
  Serious: Yes (Other)
  Sender: FDA-Public Use
  Company Number: JP-009507513-1605JPN013312

PATIENT
  Age: 5 Decade
  Sex: Female

DRUGS (7)
  1. GRANISETRON HYDROCHLORIDE. [Suspect]
     Active Substance: GRANISETRON HYDROCHLORIDE
     Indication: PRODUCT USED FOR UNKNOWN INDICATION
     Dosage: REGIMEN #1
     Route: 041
     Dates: start: 20160525, end: 20160525
  2. TEMODAL [Suspect]
     Active Substance: TEMOZOLOMIDE
     Dosage: TOTAL DAILY DOSE: 280 MG/M2, DIVIDED DOSE FREQUENCY UNKNOWN
     Route: 041
     Dates: start: 20160526
  3. DEXAMETHASONE. [Concomitant]
     Active Substance: DEXAMETHASONE
     Indication: PREMEDICATION
     Dosage: FORMULATION: POR; DAILY DOSAGE UNKNOWN
     Route: 048
     Dates: end: 20160524
  4. TEMODAL [Suspect]
     Active Substance: TEMOZOLOMIDE
     Indication: PRODUCT USED FOR UNKNOWN INDICATION
     Dosage: TOTAL DAILY DOSE: 280 MG/M2, DIVIDED DOSE FREQUENCY UNKNOWN
     Route: 048
     Dates: end: 20160524
  5. TEMODAL [Suspect]
     Active Substance: TEMOZOLOMIDE
     Indication: PRODUCT USED FOR UNKNOWN INDICATION
     Dosage: TOTAL DAILY DOSE: 280 MG/M2, DIVIDED DOSE FREQUENCY UNKNOWN
     Route: 041
     Dates: start: 20160525, end: 20160525
  6. DEXAMETHASONE. [Suspect]
     Active Substance: DEXAMETHASONE
     Indication: PRODUCT USED FOR UNKNOWN INDICATION
     Dosage: UNKNOWN
     Route: 041
     Dates: start: 20160525, end: 20160525
  7. GRANISETRON HYDROCHLORIDE. [Concomitant]
     Active Substance: GRANISETRON HYDROCHLORIDE
     Indication: PREMEDICATION
     Dosage: UNK
     Route: 065
     Dates: end: 20160524

REACTIONS (3)
  - Disease progression [Unknown]
  - Rash [Recovered/Resolved]
  - Dysphagia [Unknown]

NARRATIVE: CASE EVENT DATE: 20160524
